FAERS Safety Report 20992590 (Version 1)
Quarter: 2022Q2

REPORT INFORMATION
  Report Type: Spontaneous
  Country: ES (occurrence: ES)
  Receive Date: 20220622
  Receipt Date: 20220622
  Transmission Date: 20220721
  Serious: Yes (Hospitalization)
  Sender: FDA-Public Use
  Company Number: None

PATIENT
  Age: 62 Year
  Sex: Female

DRUGS (2)
  1. PRALUENT [Suspect]
     Active Substance: ALIROCUMAB
     Indication: Hypercholesterolaemia
     Dosage: 300MG/28D
     Route: 059
     Dates: start: 20220501, end: 20220531
  2. PRALUENT [Suspect]
     Active Substance: ALIROCUMAB
     Dosage: 150 MG, QOW
     Dates: start: 20190903, end: 20220501

REACTIONS (1)
  - Hypertension [Recovered/Resolved]
